FAERS Safety Report 7637719-5 (Version None)
Quarter: 2011Q3

REPORT INFORMATION
  Report Type: 
  Country: None (occurrence: None)
  Receive Date: 20110727
  Receipt Date: 20110722
  Transmission Date: 20111222
  Serious: Yes (Hospitalization, Other)
  Sender: FDA-Public Use
  Company Number: CA-BRISTOL-MYERS SQUIBB COMPANY-15793086

PATIENT
  Age: 41 Year
  Sex: Female

DRUGS (14)
  1. ADVIL [Concomitant]
     Dates: start: 20110407
  2. FENTANYL [Concomitant]
     Dates: start: 20110601
  3. LORAZEPAM [Concomitant]
     Dates: start: 20110530
  4. ACETAMINOPHEN [Concomitant]
     Dosage: Q4H
     Dates: start: 20110301
  5. OXYCODONE HCL [Concomitant]
     Dosage: 31MAY11 OXYCODONE CR.
     Dates: start: 20110504
  6. GABAPENTIN [Concomitant]
     Dates: start: 20110603
  7. OLANZAPINE [Concomitant]
     Dates: start: 20110531
  8. IPILIMUMAB [Suspect]
     Indication: MALIGNANT MELANOMA
     Dosage: 1DF: 1 DOSE.02JUN11:156MG. INTERRUPTED. NO OF COURSE-2, RESUMED ON 13-JUL-2011.
     Route: 042
     Dates: start: 20110511
  9. METOCLOPRAMIDE [Concomitant]
     Dates: start: 20110531
  10. TYLENOL-500 [Concomitant]
     Dosage: 1 DF : 500MGX2
     Dates: start: 20110301
  11. ESOMEPRAZOLE MAGNESIUM [Concomitant]
     Dates: start: 20110522
  12. PREDNISONE [Concomitant]
     Dates: start: 20110527
  13. ZOPICLONE [Concomitant]
     Dosage: HS
     Dates: start: 20110522
  14. BUDESONIDE [Concomitant]
     Dates: start: 20110522

REACTIONS (5)
  - ABDOMINAL PAIN [None]
  - FATIGUE [None]
  - COLITIS [None]
  - DIARRHOEA [None]
  - NAUSEA [None]
